FAERS Safety Report 16995936 (Version 1)
Quarter: 2019Q4

REPORT INFORMATION
  Report Type: Spontaneous
  Country: CN (occurrence: CN)
  Receive Date: 20191105
  Receipt Date: 20191105
  Transmission Date: 20200122
  Serious: Yes (Other)
  Sender: FDA-Public Use
  Company Number: CN-PFIZER INC-2019474588

PATIENT
  Age: 42 Year
  Sex: Male
  Weight: 65 kg

DRUGS (2)
  1. LIPITOR [Suspect]
     Active Substance: ATORVASTATIN CALCIUM
     Indication: ASTHENIA
     Dosage: 40 MG, 1X/DAY
     Route: 048
     Dates: start: 20191003, end: 20191010
  2. LIPITOR [Suspect]
     Active Substance: ATORVASTATIN CALCIUM
     Indication: CEREBRAL INFARCTION

REACTIONS (5)
  - Product used for unknown indication [Unknown]
  - Myalgia [Recovering/Resolving]
  - Myocardial necrosis marker increased [Recovering/Resolving]
  - Muscle swelling [Recovering/Resolving]
  - Off label use [Unknown]

NARRATIVE: CASE EVENT DATE: 20191003
